FAERS Safety Report 5918787-5 (Version None)
Quarter: 2008Q4

REPORT INFORMATION
  Report Type: 
  Country: None (occurrence: None)
  Receive Date: 20081015
  Receipt Date: 20081009
  Transmission Date: 20090506
  Serious: Yes (Hospitalization)
  Sender: FDA-Public Use
  Company Number: CN-BAYER-200827932GPV

PATIENT
  Age: 77 Year
  Sex: Male
  Weight: 93 kg

DRUGS (1)
  1. MOXIFLOXACIN VS AMOXICILLIN-CLAVULANATE OR CLARITHROMYCIN [Suspect]
     Indication: BRONCHITIS
     Route: 048
     Dates: start: 20081006, end: 20081008

REACTIONS (1)
  - CHRONIC OBSTRUCTIVE PULMONARY DISEASE [None]
